FAERS Safety Report 23252812 (Version 10)
Quarter: 2025Q2

REPORT INFORMATION
  Report Type: Report from Study
  Country: BR (occurrence: BR)
  Receive Date: 20231201
  Receipt Date: 20250514
  Transmission Date: 20250716
  Serious: Yes (Hospitalization, Other)
  Sender: PFIZER
  Company Number: BR-PFIZER INC-202300319142

PATIENT
  Sex: Male

DRUGS (4)
  1. ELRANATAMAB [Suspect]
     Active Substance: ELRANATAMAB
     Indication: Plasma cell myeloma
     Route: 058
  2. ELRANATAMAB [Suspect]
     Active Substance: ELRANATAMAB
     Route: 058
  3. ELRANATAMAB [Suspect]
     Active Substance: ELRANATAMAB
  4. ELRANATAMAB [Suspect]
     Active Substance: ELRANATAMAB

REACTIONS (7)
  - Diarrhoea [Not Recovered/Not Resolved]
  - Small intestine ulcer [Unknown]
  - Cytokine release syndrome [Recovering/Resolving]
  - Salmonellosis [Not Recovered/Not Resolved]
  - Rash [Recovered/Resolved]
  - Xerosis [Recovering/Resolving]
  - Acidosis [Unknown]

NARRATIVE: CASE EVENT DATE: 20240401
